FAERS Safety Report 11539218 (Version 1)
Quarter: 2015Q3

REPORT INFORMATION
  Report Type: Spontaneous
  Country: US (occurrence: US)
  Receive Date: 20150923
  Receipt Date: 20150923
  Transmission Date: 20151125
  Serious: No
  Sender: FDA-Public Use
  Company Number: US-TEVA-537812USA

PATIENT
  Sex: Female

DRUGS (1)
  1. NEFAZODONE [Suspect]
     Active Substance: NEFAZODONE
     Dosage: 200 MILLIGRAM DAILY; 175MG IN AM AND 25 MG PM
     Route: 065

REACTIONS (8)
  - Nausea [Unknown]
  - Anxiety [Unknown]
  - Asthenia [Unknown]
  - Tremor [Unknown]
  - Syncope [Unknown]
  - Dizziness [Unknown]
  - Muscle tightness [Unknown]
  - Malaise [Unknown]
